FAERS Safety Report 8345257-X (Version None)
Quarter: 2012Q2

REPORT INFORMATION
  Report Type: 
  Country: None (occurrence: None)
  Receive Date: 20120508
  Receipt Date: 20120427
  Transmission Date: 20120825
  Serious: Yes (Other)
  Sender: FDA-Public Use
  Company Number: JP-VERTEX PHARMACEUTICALS INC.-AE-2012-006005

PATIENT
  Age: 68 Year
  Sex: Male

DRUGS (9)
  1. REBETOL [Concomitant]
     Indication: HEPATITIS C
     Route: 048
     Dates: start: 20120410, end: 20120424
  2. PEG-INTRON [Concomitant]
     Indication: HEPATITIS C
     Route: 051
     Dates: start: 20120410, end: 20120416
  3. TELAVIC (TELAPREVIR) [Suspect]
     Indication: HEPATITIS C
     Route: 048
     Dates: start: 20120410, end: 20120424
  4. LIVACT [Concomitant]
     Route: 048
  5. PROMACTA [Concomitant]
     Route: 048
  6. ALLOPURINOL [Concomitant]
     Route: 048
  7. PEG-INTRON [Concomitant]
     Route: 051
     Dates: start: 20120417, end: 20120423
  8. URSO 250 [Concomitant]
     Route: 048
  9. ZOLPIDEM [Concomitant]
     Route: 048

REACTIONS (1)
  - LIVER DISORDER [None]
